FAERS Safety Report 10172803 (Version 1)
Quarter: 2014Q2

REPORT INFORMATION
  Report Type: Spontaneous
  Country: FR (occurrence: FR)
  Receive Date: 20140515
  Receipt Date: 20140515
  Transmission Date: 20141212
  Serious: Yes (Other)
  Sender: FDA-Public Use
  Company Number: FR-ROCHE-1400501

PATIENT
  Age: 5 Year
  Sex: Male

DRUGS (4)
  1. ROCEPHINE [Suspect]
     Indication: PRODUCT USED FOR UNKNOWN INDICATION
     Route: 042
     Dates: end: 20140405
  2. PARACETAMOL [Suspect]
     Indication: PRODUCT USED FOR UNKNOWN INDICATION
     Route: 065
     Dates: start: 20140403, end: 20140404
  3. MORPHINE [Concomitant]
     Dosage: THEN 0.5 MG BOLUS
     Route: 065
     Dates: start: 20140404
  4. NUBAIN [Concomitant]
     Route: 065
     Dates: start: 20140404

REACTIONS (1)
  - Transaminases increased [Recovered/Resolved]
